FAERS Safety Report 5155582-1 (Version None)
Quarter: 2006Q4

REPORT INFORMATION
  Report Type: 
  Country: None (occurrence: None)
  Receive Date: 20061114
  Receipt Date: 20061107
  Transmission Date: 20070319
  Serious: Yes (Death)
  Sender: FDA-Public Use
  Company Number: 163-21880-06110365

PATIENT
  Sex: Male

DRUGS (1)
  1. REVLIMID [Suspect]
     Indication: MYELOID LEUKAEMIA
     Dosage: 50 MG, 2 IN 1 D, ORAL
     Route: 048

REACTIONS (1)
  - DEATH [None]
